FAERS Safety Report 10449995 (Version 2)
Quarter: 2015Q3

REPORT INFORMATION
  Report Type: Report from Study
  Country: US (occurrence: US)
  Receive Date: 20140912
  Receipt Date: 20150902
  Transmission Date: 20151125
  Serious: Yes (Death, Other)
  Sender: FDA-Public Use
  Company Number: US-ASTELLAS-2014US012083

PATIENT
  Age: 92 Year
  Sex: Female

DRUGS (10)
  1. ERLOTINIB [Suspect]
     Active Substance: ERLOTINIB
     Indication: METASTASES TO BONE
  2. AVASTIN [Suspect]
     Active Substance: BEVACIZUMAB
     Indication: METASTATIC RENAL CELL CARCINOMA
     Dosage: 400 MG, ONCE IN 2 WEEKS
     Route: 042
     Dates: start: 20050525, end: 20050525
  3. AVASTIN [Suspect]
     Active Substance: BEVACIZUMAB
     Indication: BONE CANCER
     Dosage: 450 MG, ONCE IN TWO WEEKS
     Route: 042
     Dates: start: 20050607, end: 20050810
  4. MEDROL [Concomitant]
     Active Substance: METHYLPREDNISOLONE
     Indication: PRODUCT USED FOR UNKNOWN INDICATION
     Route: 065
  5. ERLOTINIB [Suspect]
     Active Substance: ERLOTINIB
     Indication: METASTATIC RENAL CELL CARCINOMA
     Route: 048
     Dates: start: 20050607, end: 20050810
  6. AVASTIN [Suspect]
     Active Substance: BEVACIZUMAB
     Indication: MALIGNANT URINARY TRACT NEOPLASM
     Route: 042
  7. AVASTIN [Suspect]
     Active Substance: BEVACIZUMAB
     Indication: METASTASES TO BONE
     Route: 042
  8. ERLOTINIB [Suspect]
     Active Substance: ERLOTINIB
     Indication: MALIGNANT URINARY TRACT NEOPLASM
  9. AVASTIN [Suspect]
     Active Substance: BEVACIZUMAB
     Indication: RESPIRATORY TRACT NEOPLASM
     Dosage: 400 MG, ONCE IN 2 WEEKS
     Route: 042
     Dates: start: 20041229
  10. ZOMETA [Concomitant]
     Active Substance: ZOLEDRONIC ACID
     Indication: RENAL CELL CARCINOMA
     Dosage: UNK UNK, UNKNOWN FREQ.
     Route: 065
     Dates: start: 20050607, end: 20050810

REACTIONS (18)
  - Pelvic pain [Unknown]
  - Oedema peripheral [Unknown]
  - Herpes zoster [Unknown]
  - Off label use [Unknown]
  - Death [Fatal]
  - Seizure [Unknown]
  - Metastasis [Unknown]
  - Renal mass [Unknown]
  - Dyskinesia [Unknown]
  - Arthralgia [Unknown]
  - Ischaemia [Unknown]
  - Weight decreased [Unknown]
  - Fatigue [Unknown]
  - Neoplasm [Unknown]
  - Joint range of motion decreased [Unknown]
  - Pain [Unknown]
  - Headache [Unknown]
  - Rash vesicular [Unknown]

NARRATIVE: CASE EVENT DATE: 20060101
